FAERS Safety Report 8402194-X (Version None)
Quarter: 2012Q2

REPORT INFORMATION
  Report Type: 
  Country: None (occurrence: None)
  Receive Date: 20120601
  Receipt Date: 20120523
  Transmission Date: 20120825
  Serious: Yes (Life-Threatening)
  Sender: FDA-Public Use
  Company Number: IN-COVIDIEN/TYCO HEALTHCARE/MALLINCKRODT-T201202443

PATIENT
  Age: 51 Year
  Sex: Male

DRUGS (1)
  1. OPTIRAY 160 [Suspect]
     Indication: COMPUTERISED TOMOGRAM
     Dosage: 3 ML, SINGLE

REACTIONS (1)
  - ANAPHYLACTIC SHOCK [None]
